FAERS Safety Report 7355020-4 (Version None)
Quarter: 2011Q1

REPORT INFORMATION
  Report Type: 
  Country: None (occurrence: None)
  Receive Date: 20110316
  Receipt Date: 20110304
  Transmission Date: 20110831
  Serious: Yes (Hospitalization)
  Sender: FDA-Public Use
  Company Number: IE-SANOFI-AVENTIS-2011SA013424

PATIENT
  Age: 82 Year
  Sex: Male

DRUGS (1)
  1. MULTAQ [Suspect]
     Route: 048
     Dates: start: 20100101

REACTIONS (1)
  - METASTASES TO LIVER [None]
